FAERS Safety Report 5120154-1 (Version None)
Quarter: 2006Q3

REPORT INFORMATION
  Report Type: 
  Country: None (occurrence: None)
  Receive Date: 20060928
  Receipt Date: 20060920
  Transmission Date: 20061208
  Serious: Yes (Hospitalization)
  Sender: FDA-Public Use
  Company Number: 230098

PATIENT
  Age: 43 Year
  Sex: Male
  Weight: 72.2 kg

DRUGS (4)
  1. RITUXIMAB(RITUXIMAB) CONC FOR SOLUTION FOR INFUSION [Suspect]
     Indication: NON-HODGKIN'S LYMPHOMA
     Dosage: 670 MG, INTRAVENOUS
     Route: 042
     Dates: start: 20040917
  2. ONCOVIN [Concomitant]
  3. PIRARUBICIN (PIRARUBICIN) [Concomitant]
  4. VEPESID [Concomitant]

REACTIONS (3)
  - ACTIVATED PARTIAL THROMBOPLASTIN TIME PROLONGED [None]
  - DEEP VEIN THROMBOSIS [None]
  - INTERNATIONAL NORMALISED RATIO DECREASED [None]
